FAERS Safety Report 17969792 (Version 1)
Quarter: 2020Q3

REPORT INFORMATION
  Report Type: Spontaneous
  Country: US (occurrence: US)
  Receive Date: 20200701
  Receipt Date: 20200701
  Transmission Date: 20201103
  Serious: No
  Sender: FDA-Public Use
  Company Number: US-TEVA-2020-US-1793259

PATIENT
  Sex: Female

DRUGS (1)
  1. DOXAZOSIN MESYLATE. [Suspect]
     Active Substance: DOXAZOSIN MESYLATE
     Indication: HYPERTENSION
     Dosage: 10?12 MG DAILY
     Route: 065
     Dates: start: 2019

REACTIONS (1)
  - Glomerular filtration rate decreased [Not Recovered/Not Resolved]
